FAERS Safety Report 16543991 (Version 1)
Quarter: 2019Q3

REPORT INFORMATION
  Report Type: Spontaneous
  Country: AR (occurrence: AR)
  Receive Date: 20190709
  Receipt Date: 20190709
  Transmission Date: 20191004
  Serious: Yes (Other)
  Sender: FDA-Public Use
  Company Number: AR-PFIZER INC-2019289385

PATIENT
  Age: 61 Year
  Sex: Female

DRUGS (1)
  1. XELJANZ [Suspect]
     Active Substance: TOFACITINIB CITRATE
     Indication: RHEUMATOID ARTHRITIS
     Dosage: 5 MG, 2X/DAY
     Dates: start: 20160306, end: 2019

REACTIONS (2)
  - Viral infection [Recovered/Resolved]
  - Tooth disorder [Recovered/Resolved]

NARRATIVE: CASE EVENT DATE: 201903
